FAERS Safety Report 18822408 (Version 1)
Quarter: 2021Q1

REPORT INFORMATION
  Report Type: Spontaneous
  Country: US (occurrence: US)
  Receive Date: 20210202
  Receipt Date: 20210202
  Transmission Date: 20210419
  Serious: Yes (Hospitalization)
  Sender: FDA-Public Use
  Company Number: US-IPSEN BIOPHARMACEUTICALS, INC.-2021-02486

PATIENT
  Age: 61 Year
  Sex: Female
  Weight: 49.44 kg

DRUGS (1)
  1. SOMATULINE DEPOT [Suspect]
     Active Substance: LANREOTIDE ACETATE
     Indication: NEUROENDOCRINE TUMOUR
     Dosage: 120 MG ONCE MONTHLY
     Route: 065
     Dates: start: 202008

REACTIONS (2)
  - Post procedural complication [Not Recovered/Not Resolved]
  - Hepatic embolisation [Not Recovered/Not Resolved]

NARRATIVE: CASE EVENT DATE: 202101
